FAERS Safety Report 9358063 (Version 3)
Quarter: 2013Q3

REPORT INFORMATION
  Report Type: Spontaneous
  Country: US (occurrence: US)
  Receive Date: 20130620
  Receipt Date: 20130708
  Transmission Date: 20140515
  Serious: No
  Sender: FDA-Public Use
  Company Number: US-PFIZER INC-2013184311

PATIENT
  Sex: Female

DRUGS (2)
  1. EFFEXOR XR [Suspect]
     Dosage: 75 MG, UNK
  2. PRISTIQ [Concomitant]
     Dosage: UNK

REACTIONS (4)
  - Drug effect decreased [Unknown]
  - Frustration [Unknown]
  - Stress [Unknown]
  - Drug ineffective [Unknown]
